FAERS Safety Report 12870954 (Version 1)
Quarter: 2016Q4

REPORT INFORMATION
  Report Type: Spontaneous
  Country: US (occurrence: US)
  Receive Date: 20161021
  Receipt Date: 20161021
  Transmission Date: 20170207
  Serious: Yes (Other)
  Sender: FDA-Public Use
  Company Number: US-BAYER-2016-201258

PATIENT
  Sex: Female

DRUGS (1)
  1. SKYLA [Suspect]
     Active Substance: LEVONORGESTREL
     Dosage: 14 MCG/24HR, CONT
     Route: 015
     Dates: start: 2015, end: 201610

REACTIONS (4)
  - Oligomenorrhoea [None]
  - Hypomenorrhoea [None]
  - Amenorrhoea [None]
  - Post procedural haemorrhage [None]

NARRATIVE: CASE EVENT DATE: 2015
